FAERS Safety Report 4589571-2 (Version None)
Quarter: 2005Q1

REPORT INFORMATION
  Report Type: 
  Country: None (occurrence: None)
  Receive Date: 20050223
  Receipt Date: 20050216
  Transmission Date: 20050727
  Serious: Yes (Death, Life-Threatening, Hospitalization)
  Sender: FDA-Public Use
  Company Number: PHHO2005NL02953

PATIENT

DRUGS (3)
  1. CGP 57148B [Suspect]
     Indication: CHRONIC MYELOID LEUKAEMIA
     Route: 048
  2. CYTARABINE [Suspect]
     Indication: CHRONIC MYELOID LEUKAEMIA
  3. CEFEPIME [Concomitant]
     Dates: start: 20040618

REACTIONS (10)
  - ALPHA HAEMOLYTIC STREPTOCOCCAL INFECTION [None]
  - BLOOD CULTURE POSITIVE [None]
  - BRAIN ABSCESS [None]
  - BRAIN HERNIATION [None]
  - DEPRESSED LEVEL OF CONSCIOUSNESS [None]
  - FEBRILE NEUTROPENIA [None]
  - LUNG INFILTRATION [None]
  - NERVOUS SYSTEM DISORDER [None]
  - PAIN IN EXTREMITY [None]
  - PYREXIA [None]
